FAERS Safety Report 15591615 (Version 1)
Quarter: 2018Q4

REPORT INFORMATION
  Report Type: Spontaneous
  Country: KR (occurrence: KR)
  Receive Date: 20181106
  Receipt Date: 20181106
  Transmission Date: 20190205
  Serious: Yes (Death, Other)
  Sender: FDA-Public Use
  Company Number: KR-IMPAX LABORATORIES, LLC-2018-IPXL-03615

PATIENT
  Age: 50 Year
  Sex: Male

DRUGS (2)
  1. ADRENACLICK [Suspect]
     Active Substance: EPINEPHRINE
     Indication: PRODUCT USE IN UNAPPROVED INDICATION
  2. ADRENACLICK [Suspect]
     Active Substance: EPINEPHRINE
     Indication: VENTRICULAR FIBRILLATION
     Dosage: 1 MILLIGRAM
     Route: 065

REACTIONS (6)
  - Atrial fibrillation [Unknown]
  - Sudden cardiac death [Fatal]
  - Cardiac arrest [Unknown]
  - Product use in unapproved indication [Unknown]
  - Aortic rupture [Fatal]
  - Hypotension [Unknown]
